FAERS Safety Report 17168958 (Version 1)
Quarter: 2019Q4

REPORT INFORMATION
  Report Type: Spontaneous
  Country: US (occurrence: US)
  Receive Date: 20191125
  Receipt Date: 20191125
  Transmission Date: 20200122
  Serious: Yes (Death)
  Sender: FDA-Public Use
  Company Number: None

PATIENT
  Age: 63 Year
  Sex: Male

DRUGS (2)
  1. LISINOPRIL. [Concomitant]
     Active Substance: LISINOPRIL
  2. INLYTA [Suspect]
     Active Substance: AXITINIB
     Indication: RENAL CANCER RECURRENT
     Route: 048
     Dates: start: 20190829

REACTIONS (1)
  - Death [None]

NARRATIVE: CASE EVENT DATE: 20191101
